FAERS Safety Report 16045781 (Version 1)
Quarter: 2019Q2

REPORT INFORMATION
  Report Type: Spontaneous
  Country: US (occurrence: US)
  Receive Date: 20190306
  Receipt Date: 20190306
  Transmission Date: 20190711
  Serious: Yes (Other)
  Sender: FDA-Public Use
  Company Number: None

PATIENT
  Age: 38 Year
  Sex: Female
  Weight: 143.1 kg

DRUGS (1)
  1. AMLODIPINE 10 MG [Suspect]
     Active Substance: AMLODIPINE BESYLATE
     Indication: HYPERTENSION
     Dosage: ?          QUANTITY:30 CAPSULE(S);?
     Route: 048
     Dates: start: 20190305, end: 20190306

REACTIONS (9)
  - Pyrexia [None]
  - Chest pain [None]
  - Nausea [None]
  - Headache [None]
  - Dizziness [None]
  - Hypertension [None]
  - Recalled product [None]
  - Presyncope [None]
  - Palpitations [None]

NARRATIVE: CASE EVENT DATE: 20190306
